FAERS Safety Report 8168467-3 (Version None)
Quarter: 2012Q1

REPORT INFORMATION
  Report Type: 
  Country: None (occurrence: None)
  Receive Date: 20120227
  Receipt Date: 20120217
  Transmission Date: 20120608
  Serious: Yes (Death, Life-Threatening)
  Sender: FDA-Public Use
  Company Number: JP-AMGEN-JPNCT2012004920

PATIENT
  Age: 58 Year
  Sex: Male
  Weight: 44 kg

DRUGS (9)
  1. LEVOLEUCOVORIN CALCIUM [Suspect]
     Route: 041
     Dates: start: 20111202, end: 20120106
  2. IRINOTECAN HCL [Suspect]
     Indication: COLORECTAL CANCER
     Dosage: UNK UNK, Q2WK
     Route: 041
     Dates: start: 20111216, end: 20120106
  3. VECTIBIX [Suspect]
     Indication: COLORECTAL CANCER
     Dosage: 300 MG, Q2WK
     Route: 041
     Dates: start: 20111216, end: 20120106
  4. FLUOROURACIL [Suspect]
     Route: 041
     Dates: start: 20111202, end: 20120108
  5. LEVOLEUCOVORIN CALCIUM [Suspect]
     Dosage: 300 MG, Q2WK
     Route: 041
     Dates: start: 20120106, end: 20120106
  6. IRINOTECAN HCL [Suspect]
     Route: 041
     Dates: start: 20111202, end: 20120106
  7. LEVOLEUCOVORIN CALCIUM [Suspect]
     Indication: COLORECTAL CANCER
     Dosage: UNK UNK, Q2WK
     Route: 041
     Dates: start: 20111216
  8. FLUOROURACIL [Suspect]
     Indication: COLORECTAL CANCER
     Route: 041
     Dates: start: 20111216, end: 20120106
  9. FLUOROURACIL [Suspect]
     Dosage: 3500 MG, Q2WK
     Route: 041
     Dates: start: 20120106, end: 20120108

REACTIONS (2)
  - COLORECTAL CANCER [None]
  - NEUTROPHIL COUNT DECREASED [None]
